FAERS Safety Report 4452999-5 (Version None)
Quarter: 2004Q3

REPORT INFORMATION
  Report Type: 
  Country: None (occurrence: None)
  Receive Date: 20040916
  Receipt Date: 20040902
  Transmission Date: 20050211
  Serious: No
  Sender: FDA-Public Use
  Company Number: 04P-163-0272349-00

PATIENT
  Age: 36 Year
  Sex: Female

DRUGS (5)
  1. NORVIR [Suspect]
     Indication: HIV INFECTION
     Dosage: 400 MG, 1 IN 1 D, PER ORAL
     Route: 048
     Dates: start: 20030714, end: 20031113
  2. FUZEON [Suspect]
     Dosage: 180 MG, 1 IN 1 D, SUBCUTANEOUS
     Route: 058
     Dates: start: 20030714, end: 20031113
  3. LAMIVUDINE [Suspect]
     Dosage: 300 MG, 1 IN 1 D, PER ORAL
     Route: 048
     Dates: start: 20030714, end: 20031113
  4. DIDANOSINE [Suspect]
     Dosage: 250 MG, 1 IN 1 D, PER ORAL
     Route: 048
     Dates: start: 20030714, end: 20031113
  5. TIPRANAVIR [Suspect]
     Dosage: 1000 MG, 1 IN 1 D, PER ORAL
     Route: 048
     Dates: start: 20030714, end: 20031113

REACTIONS (2)
  - ABORTION INDUCED [None]
  - DRUG EXPOSURE DURING PREGNANCY [None]
